FAERS Safety Report 4842632-2 (Version None)
Quarter: 2005Q4

REPORT INFORMATION
  Report Type: 
  Country: None (occurrence: None)
  Receive Date: 20051201
  Receipt Date: 20051130
  Transmission Date: 20060501
  Serious: Yes (Other)
  Sender: FDA-Public Use
  Company Number: NZ-GLAXOSMITHKLINE-B0402167A

PATIENT
  Age: 42 Year
  Sex: Male

DRUGS (1)
  1. PAROXETINE HYDROCHLORIDE [Suspect]

REACTIONS (5)
  - ANXIETY [None]
  - BEDRIDDEN [None]
  - LOSS OF CONSCIOUSNESS [None]
  - MYDRIASIS [None]
  - VERTIGO [None]
